FAERS Safety Report 14303686 (Version 1)
Quarter: 2017Q4

REPORT INFORMATION
  Report Type: Spontaneous
  Country: HU (occurrence: HU)
  Receive Date: 20171219
  Receipt Date: 20171219
  Transmission Date: 20180321
  Serious: Yes (Other)
  Sender: FDA-Public Use
  Company Number: HU-OTSUKA-2016_002573

PATIENT
  Sex: Female

DRUGS (1)
  1. ABILIFY [Suspect]
     Active Substance: ARIPIPRAZOLE
     Indication: PRODUCT USED FOR UNKNOWN INDICATION
     Dosage: 15 MG, QD
     Route: 048

REACTIONS (5)
  - Normal newborn [Unknown]
  - Pregnancy [Unknown]
  - Uterine atony [Unknown]
  - Bacterial toxaemia [Unknown]
  - Meconium in amniotic fluid [Unknown]
